FAERS Safety Report 9516415 (Version 1)
Quarter: 2013Q3

REPORT INFORMATION
  Report Type: Spontaneous
  Country: GB (occurrence: GB)
  Receive Date: 20130911
  Receipt Date: 20130911
  Transmission Date: 20140515
  Serious: Yes (Other)
  Sender: FDA-Public Use
  Company Number: PHHY2013GB097541

PATIENT
  Sex: Male

DRUGS (2)
  1. VANCOMYCIN [Suspect]
  2. ZYVOX [Suspect]

REACTIONS (1)
  - Local swelling [Unknown]
